FAERS Safety Report 8511197-6 (Version None)
Quarter: 2012Q3

REPORT INFORMATION
  Report Type: 
  Country: None (occurrence: None)
  Receive Date: 20120716
  Receipt Date: 20120703
  Transmission Date: 20120928
  Serious: Yes (Other)
  Sender: FDA-Public Use
  Company Number: FR-MPIJNJ-2012-04729

PATIENT

DRUGS (8)
  1. BACTRIM [Concomitant]
     Indication: PROPHYLAXIS
     Dosage: 800 MG, UNK
     Route: 048
     Dates: start: 20120220
  2. ZELITREX                           /01269701/ [Concomitant]
     Indication: PROPHYLAXIS
     Dosage: 500 MG, UNK
     Route: 048
     Dates: start: 20120220
  3. AMOXICILLIN [Concomitant]
     Indication: PROPHYLAXIS
     Dosage: 500 MG, UNK
     Route: 048
     Dates: start: 20120220
  4. LEDERFOLIN                         /00566702/ [Concomitant]
     Indication: PROPHYLAXIS
     Dosage: 25 MG, UNK
     Dates: start: 20120220
  5. INNOHEP [Concomitant]
     Indication: PROPHYLAXIS
     Dosage: 0.35 ML, UNK
     Route: 058
     Dates: start: 20120220
  6. VELCADE [Suspect]
     Indication: MULTIPLE MYELOMA
     Dosage: 2.3 MG, UNK
     Dates: start: 20120220, end: 20120629
  7. REVLIMID [Suspect]
     Indication: MULTIPLE MYELOMA
     Dosage: 25 MG, UNK
     Dates: start: 20120220, end: 20120629
  8. DEXAMETHASONE [Suspect]
     Indication: MULTIPLE MYELOMA
     Dosage: 10 MG, UNK
     Dates: start: 20120220, end: 20120629

REACTIONS (1)
  - THROMBOSIS [None]
